FAERS Safety Report 10045136 (Version 2)
Quarter: 2014Q1

REPORT INFORMATION
  Report Type: Report from Study
  Country: US (occurrence: US)
  Receive Date: 20140328
  Receipt Date: 20140328
  Transmission Date: 20141002
  Serious: Yes (Hospitalization)
  Sender: FDA-Public Use
  Company Number: PHEH2014US005242

PATIENT
  Sex: Female

DRUGS (1)
  1. ILARIS [Suspect]
     Dosage: 300 MG, EVERY 4 WEEKS

REACTIONS (3)
  - Condition aggravated [Unknown]
  - Anxiety [Unknown]
  - Drug ineffective [Unknown]
